FAERS Safety Report 6389327-4 (Version None)
Quarter: 2009Q4

REPORT INFORMATION
  Report Type: 
  Country: None (occurrence: None)
  Receive Date: 20091006
  Receipt Date: 20091002
  Transmission Date: 20100525
  Serious: Yes (Death)
  Sender: FDA-Public Use
  Company Number: PHHY2009JP42563

PATIENT
  Age: 23 Year
  Sex: Male

DRUGS (1)
  1. VOLTAREN [Suspect]
     Dosage: 12.5 MG PER DAY
     Route: 054
     Dates: start: 19951101, end: 19951101

REACTIONS (2)
  - CHRONIC RESPIRATORY FAILURE [None]
  - TOXIC EPIDERMAL NECROLYSIS [None]
